FAERS Safety Report 8851300 (Version 1)
Quarter: 2012Q4

REPORT INFORMATION
  Report Type: 
  Country: US (occurrence: US)
  Receive Date: 20121020
  Receipt Date: 20121020
  Transmission Date: 20130627
  Serious: No
  Sender: FDA-Public Use
  Company Number: US-009507513-1209USA009187

PATIENT
  Age: 33 Year
  Sex: Female

DRUGS (1)
  1. NEXPLANON [Suspect]
     Indication: CONTRACEPTION
     Dosage: UNK
     Route: 059
     Dates: start: 20120802, end: 20120821

REACTIONS (6)
  - Implant site rash [Recovering/Resolving]
  - Pruritus [Recovering/Resolving]
  - Implant site urticaria [Recovering/Resolving]
  - Implant site induration [Recovering/Resolving]
  - Implant site hypersensitivity [Recovering/Resolving]
  - Implant site bruising [Recovering/Resolving]
